FAERS Safety Report 17527995 (Version 3)
Quarter: 2020Q3

REPORT INFORMATION
  Report Type: Spontaneous
  Country: US (occurrence: US)
  Receive Date: 20200311
  Receipt Date: 20200825
  Transmission Date: 20201102
  Serious: Yes (Other)
  Sender: FDA-Public Use
  Company Number: US-GILEAD-2020-0454493

PATIENT
  Sex: Male

DRUGS (35)
  1. DIPHENHYDRAMINE. [Concomitant]
     Active Substance: DIPHENHYDRAMINE
  2. GABAPENTIN. [Concomitant]
     Active Substance: GABAPENTIN
  3. BIKTARVY [Concomitant]
     Active Substance: BICTEGRAVIR SODIUM\EMTRICITABINE\TENOFOVIR ALAFENAMIDE FUMARATE
  4. FLUTICASONE. [Concomitant]
     Active Substance: FLUTICASONE
  5. PREDNISONE. [Concomitant]
     Active Substance: PREDNISONE
  6. ROPINIROLE. [Concomitant]
     Active Substance: ROPINIROLE
  7. LISINOPRIL. [Concomitant]
     Active Substance: LISINOPRIL
  8. ATORVASTATIN [Concomitant]
     Active Substance: ATORVASTATIN
  9. CYCLOBENZAPRINE. [Concomitant]
     Active Substance: CYCLOBENZAPRINE
  10. ATRIPLA [Suspect]
     Active Substance: EFAVIRENZ\EMTRICITABINE\TENOFOVIR DISOPROXIL FUMARATE
     Dosage: UNK
     Route: 048
     Dates: start: 201401, end: 201412
  11. DEPAKOTE [Concomitant]
     Active Substance: DIVALPROEX SODIUM
  12. PIROXICAM. [Concomitant]
     Active Substance: PIROXICAM
  13. CARISOPRODOL. [Concomitant]
     Active Substance: CARISOPRODOL
  14. TIZANIDINE. [Concomitant]
     Active Substance: TIZANIDINE
  15. TOPIRAMATE. [Concomitant]
     Active Substance: TOPIRAMATE
  16. LYRICA [Concomitant]
     Active Substance: PREGABALIN
  17. ZETIA [Concomitant]
     Active Substance: EZETIMIBE
  18. ZONISAMIDE. [Concomitant]
     Active Substance: ZONISAMIDE
  19. ATRIPLA [Suspect]
     Active Substance: EFAVIRENZ\EMTRICITABINE\TENOFOVIR DISOPROXIL FUMARATE
     Dosage: UNK
     Route: 048
     Dates: start: 200901, end: 201807
  20. DOXYCYCLINE. [Concomitant]
     Active Substance: DOXYCYCLINE
  21. LEVAQUIN [Concomitant]
     Active Substance: LEVOFLOXACIN
  22. CLONAZEPAM. [Concomitant]
     Active Substance: CLONAZEPAM
  23. AZITHROMYCIN ANHYDROUS. [Concomitant]
     Active Substance: AZITHROMYCIN ANHYDROUS
  24. SIMVASTATIN. [Concomitant]
     Active Substance: SIMVASTATIN
  25. EZETIMIBE. [Concomitant]
     Active Substance: EZETIMIBE
  26. TRAMADOL. [Concomitant]
     Active Substance: TRAMADOL
  27. ATRIPLA [Suspect]
     Active Substance: EFAVIRENZ\EMTRICITABINE\TENOFOVIR DISOPROXIL FUMARATE
     Indication: HIV INFECTION
     Dosage: UNK
     Route: 048
     Dates: start: 20090130, end: 20190327
  28. PHENOBARBITAL. [Concomitant]
     Active Substance: PHENOBARBITAL
  29. HYDROCODONE [Concomitant]
     Active Substance: HYDROCODONE
  30. MUPIROCIN. [Concomitant]
     Active Substance: MUPIROCIN
  31. ATRIPLA [Suspect]
     Active Substance: EFAVIRENZ\EMTRICITABINE\TENOFOVIR DISOPROXIL FUMARATE
     Dosage: UNK
     Route: 048
     Dates: start: 201610, end: 201903
  32. SULFAMETHOXAZOLE [Concomitant]
     Active Substance: SULFAMETHOXAZOLE
  33. FLUCONAZOLE. [Concomitant]
     Active Substance: FLUCONAZOLE
  34. MIRTAZAPINE. [Concomitant]
     Active Substance: MIRTAZAPINE
  35. OMEPRAZOLE. [Concomitant]
     Active Substance: OMEPRAZOLE

REACTIONS (13)
  - Chronic kidney disease [Not Recovered/Not Resolved]
  - Osteoporosis [Not Recovered/Not Resolved]
  - Rib fracture [Recovered/Resolved]
  - Pain [Not Recovered/Not Resolved]
  - Renal failure [Unknown]
  - Emotional distress [Not Recovered/Not Resolved]
  - Anxiety [Not Recovered/Not Resolved]
  - Osteopenia [Not Recovered/Not Resolved]
  - Spinal operation [Recovered/Resolved]
  - Anhedonia [Not Recovered/Not Resolved]
  - Economic problem [Not Recovered/Not Resolved]
  - Multiple fractures [Unknown]
  - Bone disorder [Recovered/Resolved]

NARRATIVE: CASE EVENT DATE: 2010
